FAERS Safety Report 5950588-4 (Version None)
Quarter: 2008Q4

REPORT INFORMATION
  Report Type: 
  Country: None (occurrence: None)
  Receive Date: 20081022
  Receipt Date: 20080812
  Transmission Date: 20090506
  Serious: No
  Sender: FDA-Public Use
  Company Number: SPV1-2008-01713

PATIENT
  Age: 8 Year
  Sex: Female
  Weight: 22.8 kg

DRUGS (3)
  1. VYVANSE [Suspect]
     Indication: ATTENTION DEFICIT/HYPERACTIVITY DISORDER
     Dosage: 30 MG, 1X/DAY:QD, ORAL
     Route: 048
     Dates: start: 20080701, end: 20080808
  2. ZOLOFT [Concomitant]
  3. CLONIDINE [Concomitant]

REACTIONS (6)
  - ABDOMINAL PAIN UPPER [None]
  - ABNORMAL BEHAVIOUR [None]
  - AGITATION [None]
  - ANGER [None]
  - REBOUND EFFECT [None]
  - WHITE BLOOD CELL COUNT INCREASED [None]
